FAERS Safety Report 25361475 (Version 3)
Quarter: 2025Q3

REPORT INFORMATION
  Report Type: Spontaneous
  Country: JP (occurrence: JP)
  Receive Date: 20250527
  Receipt Date: 20250718
  Transmission Date: 20251020
  Serious: Yes (Death, Other)
  Sender: GILEAD
  Company Number: JP-GILEAD-2025-0714384

PATIENT
  Age: 53 Year
  Sex: Female
  Weight: 54.2 kg

DRUGS (27)
  1. TRODELVY [Suspect]
     Active Substance: SACITUZUMAB GOVITECAN-HZIY
     Indication: Triple negative breast cancer
     Route: 041
     Dates: start: 20250228, end: 20250307
  2. DENOSUMAB [Concomitant]
     Active Substance: DENOSUMAB
     Dates: start: 20150812, end: 20250228
  3. DEXAMETHASONE SODIUM PHOSPHATE [Concomitant]
     Active Substance: DEXAMETHASONE SODIUM PHOSPHATE
     Dates: start: 20250228, end: 20250307
  4. PALONOSETRON HYDROCHLORIDE [Concomitant]
     Active Substance: PALONOSETRON HYDROCHLORIDE
     Dates: start: 20250228, end: 20250307
  5. FOSNETUPITANT CHLORIDE HYDROCHLORIDE [Concomitant]
     Active Substance: FOSNETUPITANT CHLORIDE HYDROCHLORIDE
     Dates: start: 20250228, end: 20250307
  6. POLARAMINE [Concomitant]
     Active Substance: DEXCHLORPHENIRAMINE MALEATE
     Dates: start: 20250228, end: 20250307
  7. METOCLOPRAMIDE HYDROCHLORIDE [Concomitant]
     Active Substance: METOCLOPRAMIDE HYDROCHLORIDE
     Indication: Antiemetic supportive care
     Dates: start: 20250321, end: 20250321
  8. ATARAX P [HYDROXYZINE HYDROCHLORIDE] [Concomitant]
     Dates: start: 20250321, end: 20250321
  9. EPINEPHRINE [Concomitant]
     Active Substance: EPINEPHRINE
     Dates: start: 20250321, end: 20250321
  10. CALCIUM CHLORIDE ANHYDROUS\POTASSIUM CHLORIDE\SODIUM CHLORIDE\SODIUM L [Concomitant]
     Active Substance: CALCIUM CHLORIDE ANHYDROUS\POTASSIUM CHLORIDE\SODIUM CHLORIDE\SODIUM LACTATE
     Dates: start: 20250321, end: 20250321
  11. NOREPINEPHRINE BITARTRATE [Concomitant]
     Active Substance: NOREPINEPHRINE BITARTRATE
     Dates: start: 20250321, end: 20250321
  12. FUROSEMIDE [Concomitant]
     Active Substance: FUROSEMIDE
     Dosage: 3 DOSAGE FORM, BID
     Route: 048
     Dates: start: 20250228, end: 20250320
  13. ELIQUIS [Concomitant]
     Active Substance: APIXABAN
     Dosage: 2 DOSAGE FORM, BID
     Route: 048
     Dates: start: 20250228, end: 20250320
  14. CALCIUM CARBONATE\CHOLECALCIFEROL\MAGNESIUM CARBONATE [Concomitant]
     Active Substance: CALCIUM CARBONATE\CHOLECALCIFEROL\MAGNESIUM CARBONATE
     Dosage: 2 DOSAGE FORM, QD
     Route: 048
     Dates: start: 20250228, end: 20250320
  15. MS CONTIN [Concomitant]
     Active Substance: MORPHINE SULFATE
     Dosage: 4 DOSAGE FORM, BID
     Route: 048
     Dates: start: 20250228, end: 20250320
  16. ISCOTIN [Concomitant]
     Active Substance: ISONIAZID
     Dosage: 1 DOSAGE FORM, QD
     Route: 048
     Dates: start: 20250228, end: 20250320
  17. URSODIOL [Concomitant]
     Active Substance: URSODIOL
     Dosage: 3 DOSAGE FORM, BID
     Route: 048
     Dates: start: 20250228, end: 20250320
  18. OLANZAPINE [Concomitant]
     Active Substance: OLANZAPINE
     Indication: Antiemetic supportive care
     Dosage: 1 DOSAGE FORM, QD
     Route: 048
     Dates: start: 20250228, end: 20250303
  19. MORPHINE HYDROCHLORIDE [Concomitant]
     Active Substance: MORPHINE HYDROCHLORIDE
     Route: 048
  20. NAPROXEN [Concomitant]
     Active Substance: NAPROXEN
     Dosage: 3 DOSAGE FORM, TID
     Route: 048
     Dates: start: 20250307, end: 20250320
  21. HEPARINOID [Concomitant]
     Dosage: BID
     Dates: start: 20250228, end: 20250320
  22. GUAIAZULENE [Concomitant]
     Active Substance: GUAIAZULENE
     Dates: start: 20250307, end: 20250320
  23. GENTAMICIN SULFATE [Concomitant]
     Active Substance: GENTAMICIN SULFATE
     Dates: start: 20250307, end: 20250320
  24. BIOFERMIN [BIFIDOBACTERIUM NOS] [Concomitant]
     Indication: Prophylaxis against diarrhoea
  25. LOPERAMIDE HYDROCHLORIDE [Concomitant]
     Active Substance: LOPERAMIDE HYDROCHLORIDE
     Indication: Prophylaxis against diarrhoea
  26. ACETAMINOPHEN [Concomitant]
     Active Substance: ACETAMINOPHEN
     Indication: Pyrexia
  27. LEVOFLOXACIN HEMIHYDRATE [Concomitant]
     Active Substance: LEVOFLOXACIN
     Indication: Pyrexia

REACTIONS (2)
  - Haematemesis [Fatal]
  - Triple negative breast cancer [Fatal]

NARRATIVE: CASE EVENT DATE: 20250321
